FAERS Safety Report 6717961-8 (Version None)
Quarter: 2010Q2

REPORT INFORMATION
  Report Type: 
  Country: None (occurrence: None)
  Receive Date: 20100510
  Receipt Date: 20100427
  Transmission Date: 20101027
  Serious: Yes (Death, Hospitalization, Other)
  Sender: FDA-Public Use
  Company Number: PHEH2008US10988

PATIENT
  Sex: Male

DRUGS (40)
  1. ELIDEL [Suspect]
     Indication: ECZEMA
     Dosage: UNK, UNK
     Route: 061
     Dates: start: 20040101
  2. CLOBETASOL PROPIONATE [Concomitant]
     Dosage: 0.05 % SPRAY
  3. DESONIDE [Concomitant]
     Dosage: 0.05 % LOTION
  4. TRIAMCINOLONE [Concomitant]
     Dosage: 0.1% OINTMENT
  5. MUPIROCIN [Concomitant]
     Dosage: 2% OINTMENT
  6. AMOXICILLIN [Concomitant]
     Dosage: 125 MG ORAL
  7. TEMOVATE [Concomitant]
  8. FLUOCINONIDE [Concomitant]
  9. CLARINEX                                /USA/ [Concomitant]
  10. FLEXERIL [Concomitant]
  11. OXYCODONE [Concomitant]
  12. OXSORALEN-ULTRA [Concomitant]
  13. TARGRETIN [Concomitant]
  14. KETOCONAZOLE [Concomitant]
  15. SIMVASTATIN [Concomitant]
  16. MORPHINE SULFATE [Concomitant]
  17. ALLEGRA D 24 HOUR [Concomitant]
  18. OXYCONTIN [Concomitant]
  19. DOXIL [Suspect]
  20. TOBRAMYCIN [Concomitant]
  21. ZOSYN [Concomitant]
  22. BACTRIM [Concomitant]
  23. HYDROCORTISONE [Concomitant]
  24. CEFTIN [Concomitant]
  25. GEMZAR [Suspect]
  26. ONTAK [Concomitant]
  27. CLOBETASOL PROPIONATE [Concomitant]
     Dosage: UNK
  28. BIAFINE [Concomitant]
     Dosage: UNK
  29. OXSORALEN-ULTRA [Concomitant]
     Dosage: UNK
  30. PROTONIX [Concomitant]
     Dosage: 40 MG, QD
  31. DUONEB [Concomitant]
     Dosage: QID
  32. COMBIVENT                               /GFR/ [Concomitant]
  33. ALBUTEROL [Concomitant]
  34. ATROVENT [Concomitant]
  35. ATROPINE OPHTHALMIC [Concomitant]
  36. MORPHINE [Concomitant]
  37. ATIVAN [Concomitant]
  38. TYLENOL (CAPLET) [Concomitant]
  39. COMPAZINE [Concomitant]
  40. DULCOLAX [Concomitant]

REACTIONS (25)
  - ABASIA [None]
  - ACTINIC KERATOSIS [None]
  - ACUTE RESPIRATORY FAILURE [None]
  - ASTHENIA [None]
  - BLOOD ALBUMIN DECREASED [None]
  - BLOOD CALCIUM DECREASED [None]
  - BLOOD CHOLESTEROL INCREASED [None]
  - CONFUSIONAL STATE [None]
  - DEATH [None]
  - DECREASED APPETITE [None]
  - DYSPNOEA [None]
  - ERYTHEMA [None]
  - GENERAL PHYSICAL HEALTH DETERIORATION [None]
  - LDL/HDL RATIO INCREASED [None]
  - LOW DENSITY LIPOPROTEIN INCREASED [None]
  - LUNG NEOPLASM MALIGNANT [None]
  - MYCOSIS FUNGOIDES [None]
  - NON-HODGKIN'S LYMPHOMA [None]
  - OEDEMA PERIPHERAL [None]
  - PAIN [None]
  - PERIPHERAL T-CELL LYMPHOMA UNSPECIFIED [None]
  - PYODERMA [None]
  - SOMNOLENCE [None]
  - SUNBURN [None]
  - WHITE BLOOD CELL COUNT INCREASED [None]
